FAERS Safety Report 20309559 (Version 1)
Quarter: 2022Q1

REPORT INFORMATION
  Report Type: Report from Study
  Country: IT (occurrence: IT)
  Receive Date: 20220107
  Receipt Date: 20220107
  Transmission Date: 20220424
  Serious: Yes (Other)
  Sender: FDA-Public Use
  Company Number: None

PATIENT
  Age: 62 Year
  Sex: Male
  Weight: 78 kg

DRUGS (4)
  1. FLUOROURACIL [Suspect]
     Active Substance: FLUOROURACIL
     Indication: Gastric cancer stage IV
     Dosage: 3800 MG; FLUOROURACIL TEVA 5 G / 100 ML SOLUTION FOR INFUSION
     Dates: start: 20211201, end: 20211201
  2. FLUOROURACIL [Suspect]
     Active Substance: FLUOROURACIL
     Indication: Gastric cancer stage IV
     Dosage: 630 MG; FLUOROURACIL TEVA 5 G / 100 ML SOLUTION FOR INFUSION
     Route: 040
     Dates: start: 20211201, end: 20211201
  3. IRINOTECAN HYDROCHLORIDE [Suspect]
     Active Substance: IRINOTECAN HYDROCHLORIDE
     Indication: Gastric cancer stage IV
     Dosage: 180 MG; IRINOTECAN HYDROCHLORIDE TRIHYDRATE
     Dates: start: 20211201, end: 20211201
  4. LEVOLEUCOVORIN CALCIUM [Concomitant]
     Active Substance: LEVOLEUCOVORIN CALCIUM
     Indication: Gastric cancer stage IV
     Dosage: 315 MG; CALCIUM LEVOFOLINATE TEVA 175 MG POWDER FOR SOLUTION FOR INFUSION
     Dates: start: 20211201, end: 20211201

REACTIONS (2)
  - Neutropenia [Unknown]
  - Leukopenia [Unknown]

NARRATIVE: CASE EVENT DATE: 20211215
